FAERS Safety Report 9074280 (Version 1)
Quarter: 2013Q1

REPORT INFORMATION
  Report Type: Spontaneous
  Country: US (occurrence: US)
  Receive Date: 20130129
  Receipt Date: 20130129
  Transmission Date: 20140127
  Serious: Yes (Hospitalization)
  Sender: FDA-Public Use
  Company Number: US-RB-048993-13

PATIENT
  Age: 31 Year
  Sex: Female

DRUGS (4)
  1. SUBOXONE FILM [Suspect]
     Dosage: SUBOXONE FILM; DOSING REGIMEN UNKNOWN
     Route: 060
     Dates: start: 2010, end: 201301
  2. SUBOXONE FILM [Suspect]
     Indication: DRUG DEPENDENCE
     Dosage: SUBOXONE FILM; VARIOUS TAPERES DOSES TO 12 MG/DAILY
     Route: 060
     Dates: start: 201301, end: 20130111
  3. BUPRENORPHINE [Suspect]
     Indication: DRUG DEPENDENCE
     Route: 060
     Dates: start: 20130114, end: 20130114
  4. ALCOHOL [Suspect]
     Indication: ALCOHOLISM
     Dosage: DOSING DETAILS UNKNOWN
     Route: 048
     Dates: end: 20130114

REACTIONS (3)
  - Wrong technique in drug usage process [Recovered/Resolved]
  - Alcohol abuse [Recovered/Resolved]
  - Exposure during pregnancy [Recovered/Resolved]
